FAERS Safety Report 14253164 (Version 1)
Quarter: 2017Q4

REPORT INFORMATION
  Report Type: Spontaneous
  Country: CA (occurrence: CA)
  Receive Date: 20171206
  Receipt Date: 20171206
  Transmission Date: 20180321
  Serious: Yes (Other)
  Sender: FDA-Public Use
  Company Number: CA-AUROBINDO-AUR-APL-2017-44158

PATIENT
  Age: 25 Year
  Sex: Male
  Weight: 82 kg

DRUGS (2)
  1. AURO-CEFIXIME TABLETS [Suspect]
     Active Substance: CEFIXIME
     Indication: KIDNEY INFECTION
     Dosage: 400 MG, ONCE A DAY
     Route: 048
  2. ADVILGEL [Concomitant]
     Active Substance: IBUPROFEN
     Indication: PRODUCT USED FOR UNKNOWN INDICATION
     Route: 065

REACTIONS (4)
  - Dysphagia [Recovering/Resolving]
  - Oropharyngeal pain [Recovering/Resolving]
  - Pharyngeal oedema [Recovering/Resolving]
  - Glossodynia [Recovering/Resolving]
